FAERS Safety Report 10034740 (Version 1)
Quarter: 2014Q1

REPORT INFORMATION
  Report Type: Spontaneous
  Country: US (occurrence: US)
  Receive Date: 20140325
  Receipt Date: 20140325
  Transmission Date: 20141002
  Serious: No
  Sender: FDA-Public Use
  Company Number: US-TEVA-469615USA

PATIENT
  Age: 72 Year
  Sex: Male
  Weight: 99.88 kg

DRUGS (4)
  1. PROAIR HFA [Suspect]
     Indication: BRONCHITIS
     Dates: start: 201402
  2. LIPITOR [Concomitant]
  3. ASPIRIN [Concomitant]
  4. VITAMINS [Concomitant]

REACTIONS (2)
  - Sensation of foreign body [Not Recovered/Not Resolved]
  - Oropharyngeal pain [Not Recovered/Not Resolved]
